FAERS Safety Report 25032041 (Version 1)
Quarter: 2025Q1

REPORT INFORMATION
  Report Type: Spontaneous
  Country: CL (occurrence: CL)
  Receive Date: 20250303
  Receipt Date: 20250303
  Transmission Date: 20250408
  Serious: Yes (Death, Hospitalization)
  Sender: PFIZER
  Company Number: CL-PFIZER INC-PV202500024435

PATIENT
  Age: 34 Year
  Sex: Male

DRUGS (1)
  1. BRAFTOVI [Suspect]
     Active Substance: ENCORAFENIB

REACTIONS (4)
  - Death [Fatal]
  - Renal failure [Unknown]
  - Dehydration [Unknown]
  - Liver disorder [Unknown]
